FAERS Safety Report 8496717-2 (Version None)
Quarter: 2012Q2

REPORT INFORMATION
  Report Type: 
  Country: None (occurrence: None)
  Receive Date: 20120629
  Receipt Date: 20120619
  Transmission Date: 20120825
  Serious: Yes (Hospitalization, Disabling)
  Sender: FDA-Public Use
  Company Number: DSJ-2012-09515

PATIENT
  Age: 75 Year
  Sex: Male
  Weight: 49.6 kg

DRUGS (4)
  1. NINJIN-YOEI-TO (NINJIN-YOEI-TO) [Suspect]
     Indication: PRODUCT USED FOR UNKNOWN INDICATION
     Dosage: 9 GM (3 GM, 3 IN 1 D), PER ORAL
     Route: 048
     Dates: end: 20120519
  2. OLMESARTAN MEDOXOMIL [Suspect]
     Indication: PRODUCT USED FOR UNKNOWN INDICATION
     Dosage: 20 MG (20 MG, 1 IN 1 D), PER ORAL
     Route: 048
     Dates: start: 20120406, end: 20120519
  3. URIEF (SILODOSIN) (SILODOSIN) [Suspect]
     Indication: BENIGN PROSTATIC HYPERPLASIA
     Dosage: 4 MG (2 MG, 2 IN 1 D), PER ORAL
     Route: 048
     Dates: start: 20120515, end: 20120519
  4. LENDORM [Concomitant]

REACTIONS (2)
  - PLATELET COUNT DECREASED [None]
  - MOUTH HAEMORRHAGE [None]
